FAERS Safety Report 4634418-9 (Version None)
Quarter: 2005Q2

REPORT INFORMATION
  Report Type: 
  Country: None (occurrence: None)
  Receive Date: 20050412
  Receipt Date: 20050330
  Transmission Date: 20051028
  Serious: Yes (Disabling, Other)
  Sender: FDA-Public Use
  Company Number: 2005046314

PATIENT
  Sex: Female
  Weight: 83.9154 kg

DRUGS (7)
  1. NEURONTIN [Suspect]
     Indication: ARTHRITIS
     Dosage: ORAL; FOLLOW-UP
     Route: 048
  2. BEXTRA [Suspect]
     Indication: ARTHRITIS
     Dosage: ORAL
     Route: 048
  3. GABAPENTIN [Suspect]
     Indication: ARTHRITIS
  4. OMEPRAZOLE [Concomitant]
  5. HYZAAR [Concomitant]
  6. RALOXIFENE HCL [Concomitant]
  7. DESIPRAMINE HCL [Concomitant]

REACTIONS (7)
  - ABASIA [None]
  - ARTHRALGIA [None]
  - BEDRIDDEN [None]
  - CONVULSION [None]
  - DRUG INEFFECTIVE [None]
  - MOBILITY DECREASED [None]
  - WEIGHT INCREASED [None]
